FAERS Safety Report 5965732-2 (Version None)
Quarter: 2008Q4

REPORT INFORMATION
  Report Type: 
  Country: None (occurrence: None)
  Receive Date: 20081125
  Receipt Date: 20081124
  Transmission Date: 20090506
  Serious: Yes (Hospitalization)
  Sender: FDA-Public Use
  Company Number: A0758189A

PATIENT
  Age: 18 Year
  Sex: Female

DRUGS (1)
  1. COMPAZINE [Suspect]
     Indication: DRUG USE FOR UNKNOWN INDICATION
     Route: 065
     Dates: end: 19740101

REACTIONS (1)
  - CONVULSION [None]
